FAERS Safety Report 7626650-7 (Version None)
Quarter: 2011Q3

REPORT INFORMATION
  Report Type: 
  Country: None (occurrence: None)
  Receive Date: 20110721
  Receipt Date: 20110531
  Transmission Date: 20111222
  Serious: No
  Sender: FDA-Public Use
  Company Number: US-NOVEN-11US002549

PATIENT
  Sex: Male

DRUGS (2)
  1. FENTANYL [Suspect]
     Indication: PAIN
     Dosage: 75 UG/HR
     Route: 062
     Dates: start: 20110527
  2. PERCOCET [Concomitant]
     Indication: PAIN
     Dosage: UP TO 4 TABLETS PRN DAILY
     Route: 048

REACTIONS (4)
  - PRODUCT QUALITY ISSUE [None]
  - DIARRHOEA [None]
  - APPLICATION SITE RASH [None]
  - DRUG ADMINISTRATION ERROR [None]
